FAERS Safety Report 25342838 (Version 2)
Quarter: 2025Q2

REPORT INFORMATION
  Report Type: Spontaneous
  Country: RU (occurrence: RU)
  Receive Date: 20250521
  Receipt Date: 20250530
  Transmission Date: 20250717
  Serious: Yes (Death, Hospitalization, Other)
  Sender: IPSEN BIOPHARMACEUTICALS, INC.
  Company Number: RU-IPSEN Group, Research and Development-2025-12023

PATIENT
  Age: 36 Year
  Sex: Male

DRUGS (3)
  1. LANREOTIDE ACETATE [Suspect]
     Active Substance: LANREOTIDE ACETATE
     Indication: Pancreatic neuroendocrine tumour
     Route: 058
     Dates: start: 202004, end: 202010
  2. LANREOTIDE ACETATE [Suspect]
     Active Substance: LANREOTIDE ACETATE
     Route: 058
     Dates: start: 202010, end: 202411
  3. OCTREOTIDE [Concomitant]
     Active Substance: OCTREOTIDE
     Dosage: ONCE EVERY 28 DAYS

REACTIONS (4)
  - Post procedural complication [Fatal]
  - Cholangitis [Unknown]
  - Liver abscess [Unknown]
  - Sepsis [Unknown]

NARRATIVE: CASE EVENT DATE: 20241201
